FAERS Safety Report 13175317 (Version 1)
Quarter: 2017Q1

REPORT INFORMATION
  Report Type: Report from Study
  Country: None (occurrence: US)
  Receive Date: 20170201
  Receipt Date: 20170201
  Transmission Date: 20170428
  Serious: Yes (Hospitalization, Other)
  Sender: FDA-Public Use
  Company Number: US-ABBVIE-17K-163-1850191-00

PATIENT
  Age: 59 Year
  Sex: Male

DRUGS (3)
  1. HUMIRA [Suspect]
     Active Substance: ADALIMUMAB
     Indication: PSORIASIS
     Route: 058
     Dates: start: 2006, end: 201605
  2. AMOXICILLIN. [Suspect]
     Active Substance: AMOXICILLIN
     Indication: PRODUCT USED FOR UNKNOWN INDICATION
     Route: 065
  3. HUMIRA [Suspect]
     Active Substance: ADALIMUMAB
     Route: 058
     Dates: start: 20170114

REACTIONS (13)
  - Sepsis [Unknown]
  - Clostridium difficile infection [Unknown]
  - Psoriasis [Unknown]
  - Rectal abscess [Unknown]
  - Surgery [Unknown]
  - Pneumonia [Unknown]
  - Respiratory tract infection viral [Recovering/Resolving]
  - Herpes zoster [Unknown]
  - Cellulitis [Unknown]
  - Device related thrombosis [Unknown]
  - Drug hypersensitivity [Unknown]
  - Paranasal sinus discomfort [Recovering/Resolving]
  - Skin exfoliation [Unknown]

NARRATIVE: CASE EVENT DATE: 2016
